FAERS Safety Report 16134850 (Version 1)
Quarter: 2019Q1

REPORT INFORMATION
  Report Type: Spontaneous
  Country: US (occurrence: US)
  Receive Date: 20190329
  Receipt Date: 20190329
  Transmission Date: 20190418
  Serious: Yes (Hospitalization, Other)
  Sender: FDA-Public Use
  Company Number: US-LEXICON PHARMACEUTICALS, INC-19-1606-00322

PATIENT
  Sex: Male

DRUGS (1)
  1. TELOTRISTAT ETHYL [Suspect]
     Active Substance: TELOTRISTAT ETHYL
     Indication: NEUROENDOCRINE TUMOUR
     Route: 048
     Dates: start: 20190227

REACTIONS (7)
  - Mouth ulceration [Unknown]
  - Blood magnesium decreased [Unknown]
  - Nausea [Unknown]
  - Fatigue [Unknown]
  - Blood potassium decreased [Unknown]
  - Radiotherapy [Unknown]
  - Blood creatine increased [Unknown]

NARRATIVE: CASE EVENT DATE: 2019
